FAERS Safety Report 20313034 (Version 2)
Quarter: 2022Q1

REPORT INFORMATION
  Report Type: Spontaneous
  Country: US (occurrence: US)
  Receive Date: 20220109
  Receipt Date: 20220328
  Transmission Date: 20220423
  Serious: Yes (Hospitalization)
  Sender: FDA-Public Use
  Company Number: US-LUPIN PHARMACEUTICALS INC.-2021-26588

PATIENT
  Age: 76 Year
  Sex: Male

DRUGS (6)
  1. QUETIAPINE FUMARATE [Suspect]
     Active Substance: QUETIAPINE FUMARATE
     Indication: Dementia Alzheimer^s type
     Dosage: UNK
     Route: 065
  2. QUETIAPINE FUMARATE [Suspect]
     Active Substance: QUETIAPINE FUMARATE
     Indication: Disturbance in social behaviour
  3. HALOPERIDOL [Concomitant]
     Active Substance: HALOPERIDOL
     Indication: Disturbance in social behaviour
     Dosage: UNK
     Route: 065
  4. HALOPERIDOL [Concomitant]
     Active Substance: HALOPERIDOL
     Indication: Dementia Alzheimer^s type
  5. VALPROATE [Concomitant]
     Active Substance: VALPROIC ACID
     Indication: Disturbance in social behaviour
     Dosage: 250 MG, BID
     Route: 065
  6. VALPROATE [Concomitant]
     Active Substance: VALPROIC ACID
     Indication: Dementia Alzheimer^s type

REACTIONS (4)
  - Rebound effect [Unknown]
  - Agitation [Unknown]
  - Mobility decreased [Unknown]
  - Somnolence [Unknown]
